FAERS Safety Report 5319856-3 (Version None)
Quarter: 2007Q1

REPORT INFORMATION
  Report Type: 
  Country: None (occurrence: None)
  Receive Date: 20070201
  Receipt Date: 20061208
  Transmission Date: 20070707
  Serious: Yes (Hospitalization, Other)
  Sender: FDA-Public Use
  Company Number: US-2006-035814

PATIENT
  Age: 32 Year
  Sex: Female
  Weight: 102 kg

DRUGS (2)
  1. MIRENA [Suspect]
     Indication: CONTRACEPTION
     Dosage: 20 UG/DAY, CONT, INTRA-UTERINE
     Route: 015
     Dates: start: 20060119, end: 20061114
  2. NEXIUM [Concomitant]

REACTIONS (3)
  - ABDOMINAL PAIN LOWER [None]
  - RUPTURED ECTOPIC PREGNANCY [None]
  - UTERINE PERFORATION [None]
